FAERS Safety Report 6751081-1 (Version None)
Quarter: 2010Q2

REPORT INFORMATION
  Report Type: 
  Country: None (occurrence: None)
  Receive Date: 20100528
  Receipt Date: 20100518
  Transmission Date: 20101027
  Serious: Yes (Hospitalization, Other)
  Sender: FDA-Public Use
  Company Number: 2010SP024097

PATIENT
  Sex: Male
  Weight: 70 kg

DRUGS (2)
  1. VIRAFERONPEG [Suspect]
     Indication: HEPATITIS C
     Dosage: 0.45 ML; QW; SC
     Route: 058
     Dates: start: 20100129, end: 20100312
  2. REBETOL [Suspect]
     Indication: HEPATITIS C
     Dosage: 1000 MG; QD; PO
     Route: 048
     Dates: start: 20100129, end: 20100318

REACTIONS (3)
  - DECREASED APPETITE [None]
  - LATENT TUBERCULOSIS [None]
  - PULMONARY TUBERCULOSIS [None]
